FAERS Safety Report 11194159 (Version 5)
Quarter: 2022Q4

REPORT INFORMATION
  Report Type: Spontaneous
  Country: US (occurrence: US)
  Receive Date: 20150616
  Receipt Date: 20221108
  Transmission Date: 20230113
  Serious: Yes (Other)
  Sender: FDA-Public Use
  Company Number: US-INCYTE CORPORATION-2015IN002663

PATIENT

DRUGS (3)
  1. JAKAFI [Suspect]
     Active Substance: RUXOLITINIB
     Indication: Polycythaemia vera
     Dosage: 10 MG, BID
     Route: 048
     Dates: start: 20150603
  2. JAKAFI [Suspect]
     Active Substance: RUXOLITINIB
     Indication: Myelofibrosis
     Dosage: 10 MILLIGRAM, BID
     Route: 048
     Dates: start: 201911
  3. JAKAFI [Suspect]
     Active Substance: RUXOLITINIB
     Dosage: 10 MILLIGRAM, BID
     Route: 048
     Dates: start: 20210707

REACTIONS (13)
  - White blood cell count increased [Recovering/Resolving]
  - Red blood cell count increased [Unknown]
  - Fatigue [Not Recovered/Not Resolved]
  - Weight decreased [Unknown]
  - Neuropathy peripheral [Unknown]
  - Herpes zoster [Unknown]
  - Rash [Unknown]
  - Haematocrit increased [Unknown]
  - Peripheral swelling [Unknown]
  - Somnolence [Unknown]
  - Pollakiuria [Unknown]
  - Pain [Unknown]
  - Palmar-plantar erythrodysaesthesia syndrome [Unknown]

NARRATIVE: CASE EVENT DATE: 20150101
